FAERS Safety Report 14325327 (Version 1)
Quarter: 2017Q4

REPORT INFORMATION
  Report Type: Spontaneous
  Country: US (occurrence: US)
  Receive Date: 20171223
  Receipt Date: 20171223
  Transmission Date: 20180321
  Serious: Yes (Hospitalization)
  Sender: FDA-Public Use
  Company Number: None

PATIENT
  Age: 85 Year
  Sex: Female
  Weight: 82.3 kg

DRUGS (3)
  1. METFORMIN HYDROCHLORIDE. [Suspect]
     Active Substance: METFORMIN HYDROCHLORIDE
     Dates: end: 20171214
  2. CARBOPLATIN. [Suspect]
     Active Substance: CARBOPLATIN
     Dates: end: 20171204
  3. TAXOL [Suspect]
     Active Substance: PACLITAXEL
     Dates: end: 20171204

REACTIONS (2)
  - Diarrhoea [None]
  - Haematochezia [None]

NARRATIVE: CASE EVENT DATE: 20171215
